FAERS Safety Report 5007180-8 (Version None)
Quarter: 2006Q1

REPORT INFORMATION
  Report Type: 
  Country: None (occurrence: None)
  Receive Date: 20060327
  Receipt Date: 20060117
  Transmission Date: 20060701
  Serious: Yes (Other)
  Sender: FDA-Public Use
  Company Number: 221531

PATIENT
  Age: 48 Year
  Sex: Female

DRUGS (11)
  1. AVASTIN [Suspect]
     Indication: OVARIAN CANCER
     Dosage: 15 MG/KG, Q3W
     Dates: start: 20050302, end: 20050525
  2. AVASTIN [Suspect]
     Indication: OVARIAN CANCER
     Dosage: 15 MG/KG, Q3W
     Dates: start: 20050601
  3. PACLITAXEL [Concomitant]
  4. ESOMEPRAZOLE (ESOMEPRAZOLE MAGNESIUM) [Concomitant]
  5. MEGESTROL (MEGESTROL ACETATE) [Concomitant]
  6. CYANOCOBALAMIN [Concomitant]
  7. METOPROLOL TARTRATE [Concomitant]
  8. HYDROMORPHONE (HYDROMORPHONE HYDROCHLORIDE) [Concomitant]
  9. ACETAMINOPHEN [Concomitant]
  10. PHENYLHYDRAZINE (PHENYLHYDRAZINE HYDROCHLORIDE) [Concomitant]
  11. HYDROBROMIDE (UNK INGREDIENTS) [Concomitant]

REACTIONS (1)
  - WOUND DEHISCENCE [None]
